FAERS Safety Report 5413967-X (Version None)
Quarter: 2007Q3

REPORT INFORMATION
  Report Type: 
  Country: None (occurrence: None)
  Receive Date: 20070814
  Receipt Date: 20070807
  Transmission Date: 20080115
  Serious: Yes (Hospitalization)
  Sender: FDA-Public Use
  Company Number: US-BOEHRINGER INGELHEIM PHARMACEUTICALS, INC.-2006-BP-09485BP

PATIENT
  Sex: Female

DRUGS (5)
  1. MIRAPEX [Suspect]
     Indication: PARKINSON'S DISEASE
     Route: 048
     Dates: start: 20030124, end: 20061212
  2. SINEMET [Concomitant]
     Dates: start: 20031223
  3. COMTAN [Concomitant]
     Dates: start: 20061212
  4. NAMENDA [Concomitant]
     Dates: start: 20061212
  5. ATENOLOL [Concomitant]

REACTIONS (2)
  - SOMNOLENCE [None]
  - SYNCOPE [None]
